FAERS Safety Report 20634837 (Version 1)
Quarter: 2022Q1

REPORT INFORMATION
  Report Type: Spontaneous
  Country: US (occurrence: US)
  Receive Date: 20220325
  Receipt Date: 20220325
  Transmission Date: 20220423
  Serious: Yes (Other)
  Sender: FDA-Public Use
  Company Number: US-NOVARTISPH-NVSC2022US067351

PATIENT
  Age: 65 Year
  Sex: Female

DRUGS (5)
  1. CARBOPLATIN [Interacting]
     Active Substance: CARBOPLATIN
     Indication: Fallopian tube cancer
     Dosage: UNK (WITH PACLITAXEL)
     Route: 065
  2. CARBOPLATIN [Interacting]
     Active Substance: CARBOPLATIN
     Dosage: UNK (WITH DOXIL)
     Route: 065
  3. PACLITAXEL [Interacting]
     Active Substance: PACLITAXEL
     Indication: Fallopian tube cancer
     Dosage: UNK
     Route: 065
  4. DOXIL [Interacting]
     Active Substance: DOXORUBICIN HYDROCHLORIDE
     Indication: Fallopian tube cancer
     Dosage: UNK
     Route: 065
  5. OLAPARIB [Interacting]
     Active Substance: OLAPARIB
     Indication: Fallopian tube cancer
     Dosage: UNK (FOR 1 PLUS YEAR)
     Route: 065

REACTIONS (3)
  - Acute erythroid leukaemia [Unknown]
  - Drug interaction [Unknown]
  - Product use in unapproved indication [Unknown]
